FAERS Safety Report 13566930 (Version 1)
Quarter: 2017Q2

REPORT INFORMATION
  Report Type: Spontaneous
  Country: US (occurrence: US)
  Receive Date: 20170519
  Receipt Date: 20170519
  Transmission Date: 20170830
  Serious: Yes (Death)
  Sender: FDA-Public Use
  Company Number: None

PATIENT
  Age: 62 Year
  Sex: Male

DRUGS (12)
  1. DOXYCYCLINE. [Concomitant]
     Active Substance: DOXYCYCLINE
  2. GEMFIBROZIL. [Concomitant]
     Active Substance: GEMFIBROZIL
  3. LISINOPRIL. [Concomitant]
     Active Substance: LISINOPRIL
  4. ABACAVIR. [Concomitant]
     Active Substance: ABACAVIR
  5. NEVIRAPINE. [Concomitant]
     Active Substance: NEVIRAPINE
  6. TRAZONDONE HCL [Concomitant]
  7. ATOVASTATIN CALCIUM [Concomitant]
     Active Substance: ATORVASTATIN CALCIUM
  8. GABAPENTIN. [Concomitant]
     Active Substance: GABAPENTIN
  9. DIAZEPAM. [Concomitant]
     Active Substance: DIAZEPAM
  10. LAMINUDINE [Concomitant]
  11. EGRIFTA [Suspect]
     Active Substance: TESAMORELIN
     Indication: HIV INFECTION
     Route: 058
  12. BACTRIM DS [Concomitant]
     Active Substance: SULFAMETHOXAZOLE\TRIMETHOPRIM

REACTIONS (1)
  - Death [None]
